FAERS Safety Report 5661127-X (Version None)
Quarter: 2008Q2

REPORT INFORMATION
  Report Type: 
  Country: None (occurrence: None)
  Receive Date: 20080204
  Receipt Date: 20071105
  Transmission Date: 20081010
  Serious: Yes (Hospitalization)
  Sender: FDA-Public Use
  Company Number: PHEH2007US14376

PATIENT
  Age: 86 Year
  Sex: Male

DRUGS (5)
  1. EXELON [Suspect]
     Indication: DEMENTIA ALZHEIMER'S TYPE
     Dosage: 4.6 MG, QD, TRANSDERMAL; 9.5 MG, QD, TRANSDERMAL
     Route: 062
  2. NAMENDA [Concomitant]
  3. NORVASC [Concomitant]
  4. ZOCOR [Concomitant]
  5. ADVAIR DISKUS 100/50 [Concomitant]

REACTIONS (3)
  - ATRIAL FIBRILLATION [None]
  - DYSPNOEA [None]
  - HYPERHIDROSIS [None]
